FAERS Safety Report 23396686 (Version 1)
Quarter: 2024Q1

REPORT INFORMATION
  Report Type: Spontaneous
  Country: CA (occurrence: CA)
  Receive Date: 20240112
  Receipt Date: 20240112
  Transmission Date: 20240410
  Serious: Yes (Life-Threatening)
  Sender: FDA-Public Use
  Company Number: CA-SANDOZ-SDZ2024CA003437

PATIENT
  Age: 30 Year
  Sex: Male

DRUGS (2)
  1. LEVETIRACETAM [Suspect]
     Active Substance: LEVETIRACETAM
     Dosage: 1500 MG, QD
     Route: 048
  2. LEVETIRACETAM [Suspect]
     Active Substance: LEVETIRACETAM
     Indication: Epilepsy
     Dosage: 2250 MG, QD
     Route: 048

REACTIONS (2)
  - Seizure [Recovered/Resolved]
  - Product substitution issue [Recovered/Resolved]
